FAERS Safety Report 5281071-X (Version None)
Quarter: 2007Q1

REPORT INFORMATION
  Report Type: 
  Country: None (occurrence: None)
  Receive Date: 20061229
  Receipt Date: 20051005
  Transmission Date: 20070707
  Serious: Yes (Other)
  Sender: FDA-Public Use
  Company Number: 2006UW19380

PATIENT
  Age: 70 Year
  Sex: Female
  Weight: 86.182 kg

DRUGS (5)
  1. CRESTOR [Suspect]
     Indication: BLOOD CHOLESTEROL INCREASED
     Dosage: 5 MG PO
     Route: 048
     Dates: start: 20060801
  2. GLUCOPHAGE [Concomitant]
  3. GLUCOTROL [Concomitant]
  4. LISINOPRIL [Concomitant]
  5. SEROQUEL [Concomitant]

REACTIONS (1)
  - BLOOD GLUCOSE FLUCTUATION [None]
